FAERS Safety Report 5186336-8 (Version None)
Quarter: 2006Q4

REPORT INFORMATION
  Report Type: 
  Country: None (occurrence: None)
  Receive Date: 20061213
  Receipt Date: 20061130
  Transmission Date: 20070319
  Serious: Yes (Hospitalization, Other)
  Sender: FDA-Public Use
  Company Number: 2006118067

PATIENT
  Age: 53 Year
  Sex: Male
  Weight: 97.6 kg

DRUGS (9)
  1. IDAMYCIN [Suspect]
     Indication: ACUTE MYELOID LEUKAEMIA
     Dosage: 23 MG (FREQUENCY: QD), INTRAVENOUS
     Route: 042
     Dates: start: 20050324, end: 20050326
  2. CYTARABINE [Suspect]
     Indication: ACUTE MYELOID LEUKAEMIA
     Dosage: 380 MG (FREQUENCY: QD), INTRAVENOUS
     Route: 042
     Dates: start: 20050324, end: 20050813
  3. MITOXANTRONE [Suspect]
     Indication: ACUTE MYELOID LEUKAEMIA
     Dosage: 14 MG (QD), INTRAVENOUS
     Route: 042
     Dates: start: 20050425, end: 20050429
  4. DAUNORUBICIN HCL [Suspect]
     Indication: ACUTE MYELOID LEUKAEMIA
     Dosage: 100 MG (QD), INTRAVENOUS
     Route: 042
     Dates: start: 20050523, end: 20050525
  5. ACLACINON (ACLARUBICIN HYDROCHLORIDE) [Suspect]
     Indication: ACUTE MYELOID LEUKAEMIA
     Dosage: 30 MG (QD), INTRAVENOUS
     Route: 042
     Dates: start: 20050627, end: 20050701
  6. ETOPOSIDE [Suspect]
     Indication: ACUTE MYELOID LEUKAEMIA
     Dosage: 180 MG (QD), INTRAVENOUS
     Route: 042
     Dates: start: 20050809, end: 20050813
  7. RED BLOOD CELLS [Concomitant]
  8. DIPYRIDAMOLE [Concomitant]
  9. ANTIBIOTICS (ANTIBIOTICS) [Concomitant]

REACTIONS (3)
  - ACUTE LYMPHOCYTIC LEUKAEMIA [None]
  - LEUKAEMIA [None]
  - WHITE BLOOD CELL COUNT INCREASED [None]
